FAERS Safety Report 15767458 (Version 1)
Quarter: 2018Q4

REPORT INFORMATION
  Report Type: Spontaneous
  Country: US (occurrence: US)
  Receive Date: 20181227
  Receipt Date: 20181227
  Transmission Date: 20190205
  Serious: No
  Sender: FDA-Public Use
  Company Number: US-BAYER-2018-242629

PATIENT
  Age: 81 Year
  Sex: Female
  Weight: 181 kg

DRUGS (2)
  1. VITAMINS NOS [Concomitant]
     Active Substance: VITAMINS
     Dosage: UNK
  2. MIRALAX [Suspect]
     Active Substance: POLYETHYLENE GLYCOL 3350
     Indication: GASTROINTESTINAL DISORDER
     Route: 048
     Dates: start: 201809, end: 20181220

REACTIONS (2)
  - Poor quality product administered [None]
  - Product contamination physical [Unknown]

NARRATIVE: CASE EVENT DATE: 201809
